FAERS Safety Report 20491020 (Version 1)
Quarter: 2022Q1

REPORT INFORMATION
  Report Type: Spontaneous
  Country: US (occurrence: US)
  Receive Date: 20220218
  Receipt Date: 20220218
  Transmission Date: 20220423
  Serious: Yes (Life-Threatening)
  Sender: FDA-Public Use
  Company Number: US-GW PHARMA-202201USGW00362

PATIENT
  Sex: Female
  Weight: 57.6 kg

DRUGS (1)
  1. EPIDIOLEX [Suspect]
     Active Substance: CANNABIDIOL
     Indication: Epilepsy
     Dosage: 19 MG/KG/DAY, 550 MILLIGRAM, BID
     Route: 048
     Dates: start: 2020

REACTIONS (1)
  - Suicidal ideation [Unknown]
